FAERS Safety Report 17015054 (Version 1)
Quarter: 2019Q4

REPORT INFORMATION
  Report Type: Spontaneous
  Country: US (occurrence: US)
  Receive Date: 20191111
  Receipt Date: 20191111
  Transmission Date: 20200122
  Serious: Yes (Hospitalization, Other)
  Sender: FDA-Public Use
  Company Number: US-SA-2019SA306396

PATIENT
  Age: 85 Year
  Sex: Female

DRUGS (3)
  1. PREDNISONE. [Suspect]
     Active Substance: PREDNISONE
     Route: 065
  2. LANTUS SOLOSTAR [Suspect]
     Active Substance: INSULIN GLARGINE
     Indication: TYPE 2 DIABETES MELLITUS
     Dosage: 15 U, BEDTIME
     Route: 065
     Dates: start: 201807
  3. CELEBREX [Concomitant]
     Active Substance: CELECOXIB
     Route: 065

REACTIONS (13)
  - Rheumatoid arthritis [Unknown]
  - Diabetes mellitus [Unknown]
  - Pruritus [Unknown]
  - Ulcer [Unknown]
  - Drug hypersensitivity [Unknown]
  - Blood glucose increased [Unknown]
  - Musculoskeletal pain [Unknown]
  - Skin burning sensation [Unknown]
  - Insomnia [Unknown]
  - Neck pain [Unknown]
  - Pain of skin [Unknown]
  - Skin mass [Unknown]
  - Rash [Unknown]

NARRATIVE: CASE EVENT DATE: 201904
